FAERS Safety Report 20833144 (Version 1)
Quarter: 2022Q2

REPORT INFORMATION
  Report Type: Spontaneous
  Country: HK (occurrence: HK)
  Receive Date: 20220516
  Receipt Date: 20220516
  Transmission Date: 20220721
  Serious: Yes (Hospitalization, Other)
  Sender: FDA-Public Use
  Company Number: HK-ENDO PHARMACEUTICALS INC-2022-003007

PATIENT
  Sex: Male

DRUGS (1)
  1. KETALAR [Suspect]
     Active Substance: KETAMINE HYDROCHLORIDE
     Indication: Product used for unknown indication
     Dosage: UNK UNKNOWN, UNKNOWN

REACTIONS (9)
  - Pneumomediastinum [Recovered/Resolved]
  - Subcutaneous emphysema [Recovered/Resolved]
  - Pneumorrhachis [Recovered/Resolved]
  - Acute kidney injury [Recovered/Resolved]
  - Urinary tract obstruction [Recovered/Resolved]
  - Renal impairment [Unknown]
  - Drug abuse [Unknown]
  - Bladder dysfunction [Unknown]
  - Hepatic function abnormal [Unknown]

NARRATIVE: CASE EVENT DATE: 20090101
